FAERS Safety Report 12593323 (Version 1)
Quarter: 2016Q3

REPORT INFORMATION
  Report Type: Spontaneous
  Country: US (occurrence: US)
  Receive Date: 20160726
  Receipt Date: 20160726
  Transmission Date: 20161109
  Serious: No
  Sender: FDA-Public Use
  Company Number: US-ABBVIE-15P-163-1459393-00

PATIENT

DRUGS (2)
  1. PREDNISONE. [Suspect]
     Active Substance: PREDNISONE
     Indication: INFLAMMATION
     Route: 065
     Dates: start: 20150824, end: 20150830
  2. SYNTHROID [Suspect]
     Active Substance: LEVOTHYROXINE SODIUM
     Indication: PRODUCT USED FOR UNKNOWN INDICATION
     Route: 065

REACTIONS (13)
  - Agitation [Unknown]
  - Emotional disorder [Unknown]
  - Hypertension [Unknown]
  - Memory impairment [Unknown]
  - Feeling abnormal [Unknown]
  - Paraesthesia [Recovering/Resolving]
  - Dry mouth [Unknown]
  - Disturbance in attention [Unknown]
  - Euphoric mood [Unknown]
  - Irritability [Unknown]
  - Sensory disturbance [Unknown]
  - Dizziness [Unknown]
  - Dysphagia [Unknown]

NARRATIVE: CASE EVENT DATE: 2006
